FAERS Safety Report 10184280 (Version 1)
Quarter: 2014Q2

REPORT INFORMATION
  Report Type: Spontaneous
  Country: US (occurrence: US)
  Receive Date: 20140520
  Receipt Date: 20140520
  Transmission Date: 20141212
  Serious: Yes (Hospitalization)
  Sender: FDA-Public Use
  Company Number: US-B.I. PHARMACEUTICALS,INC./RIDGEFIELD-2014-BI-21980BP

PATIENT
  Sex: Female
  Weight: 64 kg

DRUGS (2)
  1. COMBIVENT [Suspect]
     Indication: ASTHMA
     Dosage: STRENGTH: 18 MCG / 103 MCG
     Route: 055
     Dates: end: 201303
  2. LIPITOR [Concomitant]
     Indication: BLOOD CHOLESTEROL INCREASED
     Route: 048

REACTIONS (4)
  - Cerebrovascular accident [Recovered/Resolved with Sequelae]
  - Fall [Recovered/Resolved]
  - Wrist fracture [Recovered/Resolved]
  - Off label use [Unknown]
